FAERS Safety Report 7300093-8 (Version None)
Quarter: 2011Q1

REPORT INFORMATION
  Report Type: 
  Country: None (occurrence: None)
  Receive Date: 20110217
  Receipt Date: 20110214
  Transmission Date: 20110831
  Serious: Yes (Life-Threatening, Hospitalization, Other)
  Sender: FDA-Public Use
  Company Number: JP-ABBOTT-11P-087-0700442-00

PATIENT
  Sex: Male
  Weight: 59 kg

DRUGS (10)
  1. HUMIRA [Suspect]
     Dates: start: 20101016
  2. HUMIRA [Suspect]
     Dates: start: 20101116
  3. CELECOXIB [Concomitant]
     Indication: PRODUCT USED FOR UNKNOWN INDICATION
  4. FAMOTIDINE [Concomitant]
     Indication: PRODUCT USED FOR UNKNOWN INDICATION
  5. HUMIRA [Suspect]
     Dates: start: 20101207
  6. HUMIRA [Suspect]
     Dates: start: 20110108
  7. LOXOPROFEN SODIUM HYDRATE [Concomitant]
     Indication: PRODUCT USED FOR UNKNOWN INDICATION
  8. ALLOPURINOL [Concomitant]
     Indication: PRODUCT USED FOR UNKNOWN INDICATION
  9. HUMIRA [Suspect]
     Indication: RHEUMATOID ARTHRITIS
     Route: 058
     Dates: start: 20100918, end: 20110108
  10. BEZAFIBRATE [Concomitant]
     Indication: PRODUCT USED FOR UNKNOWN INDICATION

REACTIONS (3)
  - SMALL INTESTINAL PERFORATION [None]
  - MULTI-ORGAN FAILURE [None]
  - INTESTINAL OBSTRUCTION [None]
